FAERS Safety Report 17414883 (Version 2)
Quarter: 2020Q1

REPORT INFORMATION
  Report Type: Report from Study
  Country: CZ (occurrence: CZ)
  Receive Date: 20200213
  Receipt Date: 20200225
  Transmission Date: 20200409
  Serious: Yes (Hospitalization)
  Sender: FDA-Public Use
  Company Number: CZ-PFIZER INC-2020049078

PATIENT
  Age: 78 Year
  Sex: Female
  Weight: 60 kg

DRUGS (8)
  1. AZACITIDINE. [Suspect]
     Active Substance: AZACITIDINE
     Indication: ACUTE MYELOID LEUKAEMIA
     Dosage: 126 MG, DAILY FOR 7 DAYS
     Route: 058
     Dates: start: 20181217
  2. ALLOPURINOLUM [Concomitant]
     Indication: PROPHYLAXIS
     Dosage: 100 MG, 1X/DAY
     Route: 048
     Dates: start: 20181217
  3. FLUCONAZOLUM [FLUCONAZOLE] [Concomitant]
     Indication: PROPHYLAXIS
     Dosage: 100 MG, 2X/DAY
     Route: 048
     Dates: start: 20190304
  4. SULFAMETHOXAZOLE/TRIMETHOPRIM [Concomitant]
     Active Substance: SULFAMETHOXAZOLE\TRIMETHOPRIM
     Indication: PROPHYLAXIS
     Dosage: 480 MG, 1X/DAY
     Route: 048
     Dates: start: 20200115
  5. GLASDEGIB [Suspect]
     Active Substance: GLASDEGIB
     Indication: ACUTE MYELOID LEUKAEMIA
     Dosage: ONCE DAILY CONTINUOUS
     Route: 048
     Dates: start: 20181217
  6. DETRALEX [Concomitant]
     Active Substance: DIOSMIN\HESPERIDIN
     Indication: PROPHYLAXIS
     Dosage: 500 MG, 1X/DAY
     Route: 048
     Dates: start: 20181108, end: 20200120
  7. BETAXOLOLI HYDROCHLORIDUM [Concomitant]
     Indication: HYPERTENSION
     Dosage: 20 MG, 1X/DAY
     Route: 048
     Dates: start: 20190114
  8. NAPROXENUM NATRICUM [Concomitant]
     Indication: BONE PAIN
     Dosage: 275 MG, AS NEEDED
     Route: 048
     Dates: start: 20190828

REACTIONS (1)
  - Pneumonia [Recovered/Resolved]

NARRATIVE: CASE EVENT DATE: 20200201
